FAERS Safety Report 8813675 (Version 1)
Quarter: 2012Q4

REPORT INFORMATION
  Report Type: 
  Country: VN (occurrence: VN)
  Receive Date: 20120927
  Receipt Date: 20120927
  Transmission Date: 20130627
  Serious: Yes (Death, Hospitalization)
  Sender: FDA-Public Use
  Company Number: VN-BAXTER-2012BAX017875

PATIENT
  Sex: Female

DRUGS (1)
  1. DIANEAL LOW CALCIUM (2,5MEQ.L) PERITIONEAL DIALYSIS SOLUTION WITH 1.5% [Suspect]
     Indication: CAPD
     Route: 033
     Dates: start: 20110912, end: 20120905

REACTIONS (2)
  - Respiratory failure [Fatal]
  - Meningitis tuberculous [Fatal]
